FAERS Safety Report 4618311-3 (Version None)
Quarter: 2005Q1

REPORT INFORMATION
  Report Type: 
  Country: None (occurrence: None)
  Receive Date: 20050323
  Receipt Date: 20050306
  Transmission Date: 20050727
  Serious: Yes (Hospitalization)
  Sender: FDA-Public Use
  Company Number: EWC050343072

PATIENT
  Age: 78 Year
  Sex: Female

DRUGS (2)
  1. ZYPREXA [Suspect]
     Dosage: 15 MG/1 DAY
     Dates: start: 20050205
  2. VENLAFAXINE [Concomitant]

REACTIONS (2)
  - JAUNDICE [None]
  - TRANSAMINASES INCREASED [None]
